FAERS Safety Report 4703126-8 (Version None)
Quarter: 2005Q2

REPORT INFORMATION
  Report Type: 
  Country: None (occurrence: None)
  Receive Date: 20050629
  Receipt Date: 20041203
  Transmission Date: 20051028
  Serious: Yes (Hospitalization)
  Sender: FDA-Public Use
  Company Number: GB-GLAXOSMITHKLINE-B0359626A

PATIENT
  Age: 34 Year
  Sex: Male

DRUGS (2)
  1. SEROXAT [Suspect]
     Route: 065
     Dates: start: 20000901
  2. ACETAMINOPHEN [Suspect]
     Route: 065

REACTIONS (6)
  - AGGRESSION [None]
  - ALCOHOL POISONING [None]
  - ILL-DEFINED DISORDER [None]
  - INTENTIONAL MISUSE [None]
  - OVERDOSE [None]
  - SUICIDAL IDEATION [None]
